FAERS Safety Report 10007340 (Version 1)
Quarter: 2014Q1

REPORT INFORMATION
  Report Type: Spontaneous
  Country: CA (occurrence: CA)
  Receive Date: 20140313
  Receipt Date: 20140313
  Transmission Date: 20141002
  Serious: Yes (Hospitalization)
  Sender: FDA-Public Use
  Company Number: CA-GLAXOSMITHKLINE-A1064394A

PATIENT
  Age: 64 Year
  Sex: Male
  Weight: 90 kg

DRUGS (3)
  1. ADVAIR [Suspect]
     Indication: PRODUCT USED FOR UNKNOWN INDICATION
     Route: 065
  2. CIPRO [Suspect]
     Indication: PRODUCT USED FOR UNKNOWN INDICATION
     Route: 065
  3. REMICADE [Suspect]
     Indication: PRODUCT USED FOR UNKNOWN INDICATION
     Dosage: 500MG UNKNOWN
     Route: 042

REACTIONS (4)
  - Pneumonia [Recovered/Resolved]
  - Hypersensitivity [Recovered/Resolved]
  - Influenza [Recovered/Resolved]
  - Oral herpes [Recovered/Resolved]
